FAERS Safety Report 5297758-9 (Version None)
Quarter: 2007Q2

REPORT INFORMATION
  Report Type: 
  Country: None (occurrence: None)
  Receive Date: 20070416
  Receipt Date: 20070403
  Transmission Date: 20071010
  Serious: Yes (Hospitalization, Other)
  Sender: FDA-Public Use
  Company Number: FR-ELI_LILLY_AND_COMPANY-FR200603006008

PATIENT
  Age: 78 Year
  Sex: Female
  Weight: 90 kg

DRUGS (2)
  1. DIANTALVIC [Concomitant]
     Dosage: 6 D/F, DAILY (1/D)
     Route: 048
  2. FORTEO [Suspect]
     Indication: OSTEOPOROSIS
     Dosage: 20 UG, DAILY (1/D)
     Route: 058
     Dates: start: 20050215

REACTIONS (4)
  - DYSPNOEA [None]
  - JOINT EFFUSION [None]
  - SYNOVIAL CYST [None]
  - THROMBOPHLEBITIS [None]
